FAERS Safety Report 8863367 (Version 1)
Quarter: 2012Q4

REPORT INFORMATION
  Report Type: 
  Country: CN (occurrence: CN)
  Receive Date: 20121025
  Receipt Date: 20121025
  Transmission Date: 20130627
  Serious: Yes (Other)
  Sender: FDA-Public Use
  Company Number: CN-GLAXOSMITHKLINE-B0839982A

PATIENT
  Age: 46 Year
  Sex: Female
  Weight: 50 kg

DRUGS (1)
  1. SALBUTAMOL SULPHATE [Suspect]
     Indication: PNEUMONIA
     Dosage: 1ML Per day
     Route: 055
     Dates: start: 20110203, end: 20110209

REACTIONS (1)
  - Convulsion [Recovering/Resolving]
